FAERS Safety Report 9951722 (Version 1)
Quarter: 2014Q1

REPORT INFORMATION
  Report Type: Spontaneous
  Country: NZ (occurrence: NZ)
  Receive Date: 20140304
  Receipt Date: 20140304
  Transmission Date: 20141002
  Serious: Yes (Hospitalization, Other)
  Sender: FDA-Public Use
  Company Number: NZ-ASTRAZENECA-2002AP02926

PATIENT
  Sex: Female

DRUGS (4)
  1. DIPRIVAN [Suspect]
     Indication: ANAESTHESIA
     Route: 042
  2. LIGNOCAINE [Concomitant]
  3. MIDAZOLAM [Concomitant]
  4. MORPHINE [Concomitant]
     Indication: PAIN

REACTIONS (3)
  - Device failure [Recovered/Resolved with Sequelae]
  - Unwanted awareness during anaesthesia [Recovered/Resolved with Sequelae]
  - Anaesthetic complication [Recovered/Resolved]
